FAERS Safety Report 23004876 (Version 2)
Quarter: 2024Q1

REPORT INFORMATION
  Report Type: Report from Study
  Country: US (occurrence: US)
  Receive Date: 20230929
  Receipt Date: 20240101
  Transmission Date: 20240409
  Serious: Yes (Other)
  Sender: FDA-Public Use
  Company Number: US-JNJFOC-20230939086

PATIENT
  Age: 47 Year
  Sex: Male

DRUGS (3)
  1. TREMFYA [Suspect]
     Active Substance: GUSELKUMAB
     Indication: Psoriasis
     Route: 065
     Dates: start: 2022
  2. TREMFYA [Suspect]
     Active Substance: GUSELKUMAB
  3. TREMFYA [Suspect]
     Active Substance: GUSELKUMAB

REACTIONS (7)
  - Pneumonia [Unknown]
  - Prostate cancer [Unknown]
  - Cellulitis [Recovered/Resolved]
  - Eye injury [Unknown]
  - Road traffic accident [Unknown]
  - Anxiety [Unknown]
  - Psoriasis [Unknown]

NARRATIVE: CASE EVENT DATE: 20230201
